FAERS Safety Report 9837260 (Version 1)
Quarter: 2014Q1

REPORT INFORMATION
  Report Type: Spontaneous
  Country: US (occurrence: None)
  Receive Date: 20140117
  Receipt Date: 20140117
  Transmission Date: 20141002
  Serious: Yes (Disabling)
  Sender: FDA-Public Use
  Company Number: None

PATIENT
  Age: 54 Year
  Sex: Female
  Weight: 68.04 kg

DRUGS (1)
  1. HCTZ [Suspect]
     Indication: HYPERTENSION
     Dosage: 1 PILL  ONCE DAILY  TAKEN BY MOUTH
     Route: 048
     Dates: start: 20060131, end: 20131031

REACTIONS (4)
  - Basal cell carcinoma [None]
  - Squamous cell carcinoma of skin [None]
  - Sunburn [None]
  - Photosensitivity reaction [None]
